FAERS Safety Report 9055650 (Version 2)
Quarter: 2013Q2

REPORT INFORMATION
  Report Type: Spontaneous
  Country: US (occurrence: US)
  Receive Date: 20130206
  Receipt Date: 20130425
  Transmission Date: 20140414
  Serious: Yes (Hospitalization, Other)
  Sender: FDA-Public Use
  Company Number: US-009507513-1301USA012657

PATIENT
  Age: 60 Year
  Sex: Male
  Weight: 117.46 kg

DRUGS (3)
  1. VICTRELIS [Suspect]
     Indication: HEPATITIS C
     Dosage: UNK
     Route: 048
     Dates: start: 20120327
  2. RIBAVIRIN [Suspect]
     Indication: HEPATITIS C
     Dosage: UNK
     Route: 048
     Dates: start: 20120228
  3. PEGASYS [Suspect]
     Indication: HEPATITIS C
     Dosage: UNK
     Dates: start: 20120228

REACTIONS (10)
  - Pyrexia [Unknown]
  - Anaemia [Unknown]
  - Anaemia [Unknown]
  - Vomiting [Unknown]
  - Amnesia [Unknown]
  - Decreased appetite [Unknown]
  - Abdominal discomfort [Unknown]
  - Nausea [Unknown]
  - Weight decreased [Unknown]
  - Libido decreased [Unknown]
